FAERS Safety Report 4465954-6 (Version None)
Quarter: 2004Q3

REPORT INFORMATION
  Report Type: 
  Country: None (occurrence: None)
  Receive Date: 20040930
  Receipt Date: 20040915
  Transmission Date: 20050211
  Serious: Yes (Hospitalization)
  Sender: FDA-Public Use
  Company Number: S04-NOR-04873-01

PATIENT
  Age: 32 Year
  Sex: Female

DRUGS (3)
  1. CITALOPRAM HYDROBROMIDE [Suspect]
     Indication: DEPRESSION
     Dosage: 40 MG QD PO
     Route: 048
     Dates: start: 20000927, end: 20020726
  2. PARALGIN FORTE [Concomitant]
  3. LEVONORGESTREL AND ETHINYL ESTRADIOL [Concomitant]

REACTIONS (3)
  - INTRACRANIAL ANEURYSM [None]
  - SUBARACHNOID HAEMORRHAGE [None]
  - SYNCOPE [None]
